FAERS Safety Report 6004819-5 (Version None)
Quarter: 2008Q4

REPORT INFORMATION
  Report Type: 
  Country: None (occurrence: None)
  Receive Date: 20081216
  Receipt Date: 20081204
  Transmission Date: 20090506
  Serious: Yes (Other)
  Sender: FDA-Public Use
  Company Number: US-PFIZER INC-2008150678

PATIENT
  Age: 35 Year
  Sex: Female

DRUGS (3)
  1. GABAPENTIN [Suspect]
     Indication: NEURALGIA
     Dosage: UNK MG, UNK
  2. PREGABALIN [Suspect]
     Indication: NEURALGIA
     Dosage: 50 MG, 3X/DAY
  3. LORATADINE [Concomitant]
     Dosage: UNK

REACTIONS (11)
  - AMNESIA [None]
  - BLISTER [None]
  - CONFUSIONAL STATE [None]
  - DISORIENTATION [None]
  - DRUG INEFFECTIVE [None]
  - FEELING ABNORMAL [None]
  - NEURALGIA [None]
  - RASH MACULO-PAPULAR [None]
  - SEDATION [None]
  - SOMNOLENCE [None]
  - THIRST [None]
